FAERS Safety Report 14230519 (Version 1)
Quarter: 2017Q4

REPORT INFORMATION
  Report Type: Spontaneous
  Country: US (occurrence: US)
  Receive Date: 20171128
  Receipt Date: 20171128
  Transmission Date: 20180321
  Serious: Yes (Death)
  Sender: FDA-Public Use
  Company Number: US-ANTARES PHARMA, INC.-2017-LIT-ME-0422

PATIENT
  Age: 55 Year
  Sex: Male
  Weight: 96 kg

DRUGS (1)
  1. METHOTREXATE. [Suspect]
     Active Substance: METHOTREXATE
     Indication: B-CELL LYMPHOMA
     Dosage: 8 G/M2, UNK
     Route: 042

REACTIONS (6)
  - Bone marrow failure [Fatal]
  - Pancytopenia [Fatal]
  - Acute kidney injury [Unknown]
  - Septic shock [Fatal]
  - Renal tubular necrosis [Unknown]
  - Hypotension [Unknown]
